FAERS Safety Report 23701576 (Version 1)
Quarter: 2024Q2

REPORT INFORMATION
  Report Type: Report from Study
  Country: CA (occurrence: CA)
  Receive Date: 20240403
  Receipt Date: 20240403
  Transmission Date: 20240716
  Serious: Yes (Other)
  Sender: FDA-Public Use
  Company Number: CA-JAMP PHARMA CORPORATION-2024-JAM-CA-00399

PATIENT
  Age: 56 Year
  Sex: Female

DRUGS (1)
  1. SIMLANDI [Suspect]
     Active Substance: ADALIMUMAB-RYVK
     Indication: Psoriatic arthropathy
     Dosage: 40MG, EVERY WEEK
     Route: 065
     Dates: start: 20231029

REACTIONS (6)
  - Rheumatoid arthritis [Not Recovered/Not Resolved]
  - Gait inability [Not Recovered/Not Resolved]
  - Pain [Not Recovered/Not Resolved]
  - Product dose omission issue [Unknown]
  - Product dispensing issue [Unknown]
  - Inappropriate schedule of product administration [Unknown]

NARRATIVE: CASE EVENT DATE: 20231001
